FAERS Safety Report 13157402 (Version 3)
Quarter: 2019Q1

REPORT INFORMATION
  Report Type: Report from Study
  Country: US (occurrence: US)
  Receive Date: 20170127
  Receipt Date: 20190210
  Transmission Date: 20190417
  Serious: No
  Sender: FDA-Public Use
  Company Number: PHEH2017US002723

PATIENT
  Sex: Male
  Weight: 83.91 kg

DRUGS (1)
  1. COSENTYX [Suspect]
     Active Substance: SECUKINUMAB
     Indication: PSORIASIS
     Dosage: 300 MG, QMO
     Route: 058
     Dates: start: 201612

REACTIONS (3)
  - Injection site rash [Unknown]
  - Acne [Recovered/Resolved]
  - Influenza [Unknown]
